FAERS Safety Report 6537545-4 (Version None)
Quarter: 2010Q1

REPORT INFORMATION
  Report Type: 
  Country: None (occurrence: None)
  Receive Date: 20100114
  Receipt Date: 20100104
  Transmission Date: 20100710
  Serious: No
  Sender: FDA-Public Use
  Company Number: FR-ELI_LILLY_AND_COMPANY-FR200911000813

PATIENT
  Age: 36 Year
  Sex: Male
  Weight: 86 kg

DRUGS (4)
  1. ZYPREXA [Suspect]
     Indication: PERSECUTORY DELUSION
     Dosage: 10 MG, DAILY (1/D)
     Route: 048
     Dates: start: 20080801
  2. ZYPREXA [Suspect]
     Dosage: 5 MG, DAILY (1/D)
     Route: 048
  3. SEROPLEX [Concomitant]
     Indication: AFFECTIVE DISORDER
     Dosage: 10 MG, DAILY (1/D)
     Dates: start: 20080101
  4. SYMBICORT [Concomitant]
     Dates: start: 20070101

REACTIONS (1)
  - HAEMATURIA [None]
